FAERS Safety Report 9369801 (Version 2)
Quarter: 2016Q1

REPORT INFORMATION
  Report Type: Spontaneous
  Country: BR (occurrence: BR)
  Receive Date: 20130626
  Receipt Date: 20160126
  Transmission Date: 20160526
  Serious: Yes (Hospitalization, Other)
  Sender: FDA-Public Use
  Company Number: BR-PFIZER INC-2013190016

PATIENT
  Age: 68 Year
  Sex: Male
  Weight: 72 kg

DRUGS (2)
  1. LIPITOR [Suspect]
     Active Substance: ATORVASTATIN CALCIUM
     Indication: BLOOD CHOLESTEROL ABNORMAL
     Dosage: 10 MG, ONCE DAILY (ONE TABLET DAILY)
     Route: 048
     Dates: start: 2003
  2. AAS [Concomitant]
     Active Substance: ASPIRIN
     Dosage: 1 TABLET PER DAY

REACTIONS (2)
  - Cardiac disorder [Unknown]
  - Angiopathy [Unknown]

NARRATIVE: CASE EVENT DATE: 2008
